FAERS Safety Report 4645382-0 (Version None)
Quarter: 2005Q2

REPORT INFORMATION
  Report Type: 
  Country: None (occurrence: None)
  Receive Date: 20050331
  Receipt Date: 20050228
  Transmission Date: 20051028
  Serious: No
  Sender: FDA-Public Use
  Company Number: 05P-163-0292405-00

PATIENT
  Age: 61 Year
  Sex: Female
  Weight: 44.9061 kg

DRUGS (5)
  1. HUMIRA [Suspect]
     Indication: RHEUMATOID ARTHRITIS
     Dosage: 40 MG, 1 IN 2 W, SUBCUTANEOUS
     Route: 058
     Dates: start: 20040901, end: 20050101
  2. HUMIRA [Suspect]
     Indication: RHEUMATOID ARTHRITIS
     Dosage: 40 MG, 1 IN 2 W, SUBCUTANEOUS
     Route: 058
     Dates: start: 20050101, end: 20050201
  3. FORTEO [Suspect]
     Indication: OSTEOPOROSIS
     Dosage: 1 DOSAGE FORMS, 1 IN 1 D, SUBCUTANEOUS
     Route: 058
     Dates: start: 20050127, end: 20050127
  4. HORMONAL CREAM [Concomitant]
  5. PREDNISONE [Concomitant]

REACTIONS (11)
  - ABDOMINAL DISTENSION [None]
  - ABDOMINAL TENDERNESS [None]
  - ANAPHYLACTIC SHOCK [None]
  - DRUG INEFFECTIVE [None]
  - HERPES ZOSTER [None]
  - HYPERHIDROSIS [None]
  - NAIL DISCOLOURATION [None]
  - PAIN IN EXTREMITY [None]
  - SWELLING FACE [None]
  - URINARY TRACT INFECTION [None]
  - WEIGHT INCREASED [None]
